FAERS Safety Report 25300130 (Version 2)
Quarter: 2025Q2

REPORT INFORMATION
  Report Type: Spontaneous
  Country: DE (occurrence: DE)
  Receive Date: 20250512
  Receipt Date: 20250527
  Transmission Date: 20250716
  Serious: Yes (Other)
  Sender: BAYER HEALTHCARE PHARMACEUTICALS INC.
  Company Number: DE-BAYER-2025A060593

PATIENT

DRUGS (1)
  1. KERENDIA [Suspect]
     Active Substance: FINERENONE

REACTIONS (7)
  - Cardiac failure [None]
  - Cervicobrachial syndrome [None]
  - Dysaesthesia [Not Recovered/Not Resolved]
  - Hypertension [None]
  - Somatic symptom disorder [None]
  - Albuminuria [None]
  - Off label use [None]
